FAERS Safety Report 5573463-6 (Version None)
Quarter: 2007Q4

REPORT INFORMATION
  Report Type: 
  Country: None (occurrence: None)
  Receive Date: 20071226
  Receipt Date: 20071213
  Transmission Date: 20080405
  Serious: Yes (Death, Life-Threatening, Other)
  Sender: FDA-Public Use
  Company Number: GB-JNJFOC-20071006742

PATIENT
  Sex: Male
  Weight: 95 kg

DRUGS (6)
  1. REMICADE [Suspect]
     Indication: RHEUMATOID ARTHRITIS
     Route: 042
  2. SULFASALAZINE [Concomitant]
  3. PREDNISOLONE [Concomitant]
  4. IBUPROFEN [Concomitant]
  5. LISINOPRIL [Concomitant]
  6. ACETAMINOPHEN [Concomitant]

REACTIONS (1)
  - MYOSITIS [None]
